FAERS Safety Report 12340235 (Version 1)
Quarter: 2016Q2

REPORT INFORMATION
  Report Type: Spontaneous
  Country: US (occurrence: US)
  Receive Date: 20160506
  Receipt Date: 20160506
  Transmission Date: 20160815
  Serious: No
  Sender: FDA-Public Use
  Company Number: US-TEVA-586487USA

PATIENT
  Sex: Female
  Weight: 55.84 kg

DRUGS (1)
  1. LOSARTAN. [Suspect]
     Active Substance: LOSARTAN
     Indication: HYPERTENSION
     Dosage: 100 MILLIGRAM DAILY;
     Route: 065
     Dates: start: 20150416

REACTIONS (1)
  - Blood pressure systolic increased [Unknown]

NARRATIVE: CASE EVENT DATE: 2015
